FAERS Safety Report 5528220-3 (Version None)
Quarter: 2007Q4

REPORT INFORMATION
  Report Type: 
  Country: None (occurrence: None)
  Receive Date: 20071128
  Receipt Date: 20071119
  Transmission Date: 20080405
  Serious: Yes (Death)
  Sender: FDA-Public Use
  Company Number: US-BRISTOL-MYERS SQUIBB COMPANY-13979224

PATIENT
  Age: 23 Year
  Sex: Female
  Weight: 77 kg

DRUGS (8)
  1. ABILIFY [Suspect]
     Indication: BORDERLINE PERSONALITY DISORDER
     Route: 048
     Dates: start: 20060101
  2. ABILIFY [Suspect]
     Indication: DEPRESSION
     Route: 048
     Dates: start: 20060101
  3. LAMICTAL [Suspect]
     Indication: PERSONALITY DISORDER
     Route: 048
     Dates: start: 20061101, end: 20070912
  4. LAMICTAL [Suspect]
     Indication: DEPRESSION
     Route: 048
     Dates: start: 20061101, end: 20070912
  5. TOPAMAX [Concomitant]
  6. EFFEXOR [Concomitant]
  7. MINOCYCLINE HCL [Concomitant]
  8. CONTRACEPTIVE [Concomitant]
     Indication: CONTRACEPTION
     Route: 048

REACTIONS (3)
  - COMPLETED SUICIDE [None]
  - DEPRESSION [None]
  - WEIGHT INCREASED [None]
